FAERS Safety Report 8310506-0 (Version None)
Quarter: 2012Q2

REPORT INFORMATION
  Report Type: 
  Country: None (occurrence: None)
  Receive Date: 20120425
  Receipt Date: 20120419
  Transmission Date: 20120825
  Serious: Yes (Death, Other)
  Sender: FDA-Public Use
  Company Number: US-BAYER-200940218NA

PATIENT
  Age: 71 Year
  Sex: Male
  Weight: 93 kg

DRUGS (20)
  1. ZANTAC [Concomitant]
     Dosage: UNK
     Route: 042
     Dates: start: 20060407
  2. BENADRYL [Concomitant]
     Dosage: UNK
     Route: 042
     Dates: start: 20060407
  3. LIDOCAINE [Concomitant]
     Dosage: UNK
     Dates: start: 20060407
  4. HEPARIN [Concomitant]
     Dosage: UNK
     Dates: start: 20060407
  5. ASPIRIN [Concomitant]
     Dosage: 81 MG, QD
     Route: 048
  6. GLYBURIDE [Concomitant]
     Dosage: 5 MG, QD
     Route: 048
  7. MAGNESIUM SULFATE [Concomitant]
     Dosage: UNK
     Dates: start: 20060407
  8. CARDIOPLEGIA [Concomitant]
     Dosage: UNK
     Dates: start: 20060407
  9. PROTAMINE SULFATE [Concomitant]
     Dosage: UNK
     Dates: start: 20060407
  10. RED BLOOD CELLS [Concomitant]
     Dosage: 1 UNIT PERIOPERATIVELY; 2 UNITS POSTOPERATIVELY
  11. NORVASC [Concomitant]
     Dosage: 5 MG, QD
     Route: 048
  12. BUMEX [Concomitant]
     Dosage: IV BOLUSES TWICE DAILY
     Route: 042
     Dates: start: 20060407, end: 20060409
  13. VERSED [Concomitant]
     Route: 042
  14. ANCEF [Concomitant]
     Dosage: 2 GRAMS
     Route: 042
     Dates: start: 20060407
  15. TRASYLOL [Suspect]
     Indication: CORONARY ARTERY BYPASS
     Dosage: INITIAL DOSE: 1ML, 200ML CARDIOPULMONARY BYPASS PRIME
     Route: 042
     Dates: start: 20060407
  16. TRASYLOL [Suspect]
     Indication: STERNOTOMY
     Dosage: 200ML LOADING DOSE FOLLOWED BY 50ML/HR INFUSION
  17. LISINOPRIL [Concomitant]
     Dosage: 20 MG, QD
     Route: 048
  18. ZOCOR [Concomitant]
     Dosage: 20 MG, QD
     Route: 048
  19. FENTANYL [Concomitant]
     Dosage: UNK
     Route: 042
     Dates: start: 20060407
  20. MANNITOL [Concomitant]
     Dosage: UNK
     Dates: start: 20060407

REACTIONS (13)
  - RENAL IMPAIRMENT [None]
  - EMOTIONAL DISTRESS [None]
  - RENAL INJURY [None]
  - ANXIETY [None]
  - UNEVALUABLE EVENT [None]
  - MULTI-ORGAN FAILURE [None]
  - STRESS [None]
  - FEAR [None]
  - RENAL FAILURE [None]
  - PAIN [None]
  - DEATH [None]
  - ANHEDONIA [None]
  - INJURY [None]
